FAERS Safety Report 8186650-8 (Version None)
Quarter: 2012Q1

REPORT INFORMATION
  Report Type: 
  Country: None (occurrence: None)
  Receive Date: 20120302
  Receipt Date: 20120302
  Transmission Date: 20120608
  Serious: No
  Sender: FDA-Public Use
  Company Number: None

PATIENT
  Sex: Female
  Weight: 79.6 kg

DRUGS (1)
  1. ERBITUX [Suspect]
     Dosage: 445 MG

REACTIONS (1)
  - LYMPHOPENIA [None]
